FAERS Safety Report 6728959-8 (Version None)
Quarter: 2010Q2

REPORT INFORMATION
  Report Type: 
  Country: None (occurrence: None)
  Receive Date: 20100517
  Receipt Date: 20100311
  Transmission Date: 20101027
  Serious: No
  Sender: FDA-Public Use
  Company Number: US-ABBOTT-10P-163-0632377-00

PATIENT
  Sex: Male
  Weight: 74.456 kg

DRUGS (12)
  1. SIMCOR [Suspect]
     Indication: HIGH DENSITY LIPOPROTEIN DECREASED
     Dosage: 500/20 MG
     Dates: start: 20100303, end: 20100310
  2. SIMCOR [Suspect]
     Indication: LOW DENSITY LIPOPROTEIN INCREASED
  3. ALLOPURINOL [Concomitant]
     Indication: GOUT
  4. AMLODIPINE [Concomitant]
     Indication: HYPERTENSION
  5. COUMADIN [Concomitant]
     Indication: ATRIAL FIBRILLATION
  6. FUROSEMIDE [Concomitant]
     Indication: HYPERTENSION
  7. LISINOPRIL [Concomitant]
     Indication: HYPERTENSION
  8. POTASSIUM [Concomitant]
     Indication: ELECTROLYTE SUBSTITUTION THERAPY
  9. SENNA [Concomitant]
     Indication: CONSTIPATION PROPHYLAXIS
  10. CO Q10 [Concomitant]
     Indication: SUPPLEMENTATION THERAPY
  11. CENTRUM [Concomitant]
     Indication: VITAMIN SUPPLEMENTATION
  12. LOVAZA [Concomitant]
     Indication: SUPPLEMENTATION THERAPY

REACTIONS (1)
  - FLUSHING [None]
